FAERS Safety Report 5450067-7 (Version None)
Quarter: 2007Q3

REPORT INFORMATION
  Report Type: 
  Country: None (occurrence: None)
  Receive Date: 20070912
  Receipt Date: 20070903
  Transmission Date: 20080115
  Serious: Yes (Disabling, Other)
  Sender: FDA-Public Use
  Company Number: GB-ELI_LILLY_AND_COMPANY-GB200709000210

PATIENT
  Age: 45 Year
  Sex: Female

DRUGS (1)
  1. FLUOXETINE [Suspect]
     Dosage: 20 MG, UNK
     Route: 048
     Dates: start: 20000101

REACTIONS (2)
  - DEPRESSION [None]
  - DRUG INTERACTION [None]
